FAERS Safety Report 20671282 (Version 2)
Quarter: 2022Q3

REPORT INFORMATION
  Report Type: Spontaneous
  Country: US (occurrence: US)
  Receive Date: 20220404
  Receipt Date: 20220712
  Transmission Date: 20221026
  Serious: No
  Sender: FDA-Public Use
  Company Number: US-BRISTOL-MYERS SQUIBB COMPANY-2022-013627

PATIENT
  Age: 90 Year
  Sex: Female

DRUGS (2)
  1. REVLIMID [Suspect]
     Active Substance: LENALIDOMIDE
     Indication: Plasma cell myeloma in remission
     Dosage: TAKE 1 CAPSULE BY MOUTH EVERY OTHER DAY
     Route: 048
  2. REVLIMID [Suspect]
     Active Substance: LENALIDOMIDE
     Route: 048
     Dates: start: 20220217

REACTIONS (4)
  - Constipation [Unknown]
  - Diarrhoea [Unknown]
  - Oedema peripheral [Unknown]
  - Off label use [Unknown]
